FAERS Safety Report 12361561 (Version 1)
Quarter: 2016Q2

REPORT INFORMATION
  Report Type: Spontaneous
  Country: US (occurrence: US)
  Receive Date: 20160512
  Receipt Date: 20160512
  Transmission Date: 20160815
  Serious: No
  Sender: FDA-Public Use
  Company Number: US-SA-2016SA048855

PATIENT
  Age: 84 Year
  Sex: Female

DRUGS (4)
  1. PRALUENT [Suspect]
     Active Substance: ALIROCUMAB
     Indication: BONE CANCER
     Route: 058
     Dates: start: 20151029
  2. PRALUENT [Suspect]
     Active Substance: ALIROCUMAB
     Indication: ECHINOCOCCIASIS
     Route: 058
     Dates: start: 20151029
  3. ALIROCUMAB PREFILLED PEN [Concomitant]
     Active Substance: ALIROCUMAB
     Dates: start: 20151029
  4. PRALUENT [Suspect]
     Active Substance: ALIROCUMAB
     Indication: SCHISTOSOMIASIS
     Route: 058
     Dates: start: 20151029

REACTIONS (1)
  - Injection site pain [Unknown]

NARRATIVE: CASE EVENT DATE: 20160301
